FAERS Safety Report 15961382 (Version 6)
Quarter: 2021Q1

REPORT INFORMATION
  Report Type: Report from Study
  Country: US (occurrence: US)
  Receive Date: 20190214
  Receipt Date: 20210105
  Transmission Date: 20210419
  Serious: Yes (Hospitalization)
  Sender: FDA-Public Use
  Company Number: US-TAKEDA-2019TUS001111

PATIENT
  Sex: Female

DRUGS (3)
  1. PONATINIB [Suspect]
     Active Substance: PONATINIB
     Indication: NEUTROPENIA
  2. BLINATUMOMAB [Concomitant]
     Active Substance: BLINATUMOMAB
     Dosage: UNK
  3. PONATINIB [Suspect]
     Active Substance: PONATINIB
     Indication: ACUTE LYMPHOCYTIC LEUKAEMIA
     Dosage: 30 MILLIGRAM, QD
     Route: 048
     Dates: start: 20181213

REACTIONS (14)
  - Illness [Not Recovered/Not Resolved]
  - Vitreous floaters [Unknown]
  - Rash erythematous [Unknown]
  - Pain [Unknown]
  - Skin exfoliation [Unknown]
  - Nausea [Unknown]
  - Off label use [Unknown]
  - Back pain [Unknown]
  - Platelet count decreased [Unknown]
  - Retching [Unknown]
  - Dyspnoea [Unknown]
  - Drug hypersensitivity [Unknown]
  - Dry skin [Unknown]
  - Dizziness [Unknown]
